FAERS Safety Report 19518746 (Version 1)
Quarter: 2021Q3

REPORT INFORMATION
  Report Type: Spontaneous
  Country: US (occurrence: US)
  Receive Date: 20210712
  Receipt Date: 20210712
  Transmission Date: 20211014
  Serious: No
  Sender: FDA-Public Use
  Company Number: US-ALLERGAN-2122605US

PATIENT
  Sex: Female

DRUGS (7)
  1. TRAZODONE [Concomitant]
     Active Substance: TRAZODONE HYDROCHLORIDE
     Indication: SLEEP DISORDER
     Dosage: 50 MG
  2. TIZANIDINE. [Concomitant]
     Active Substance: TIZANIDINE
     Indication: HEADACHE
     Dosage: 2 MG
  3. UBRELVY [Suspect]
     Active Substance: UBROGEPANT
     Indication: MIGRAINE
     Dosage: 100 MG
  4. NAPROXEN. [Concomitant]
     Active Substance: NAPROXEN
     Indication: HEADACHE
  5. UBRELVY [Suspect]
     Active Substance: UBROGEPANT
     Dosage: 50 MG
  6. PROMETHAZINE [Concomitant]
     Active Substance: PROMETHAZINE HYDROCHLORIDE
     Indication: HEADACHE
     Dosage: 12.5 MG
  7. ONDANSETRON [Concomitant]
     Active Substance: ONDANSETRON
     Indication: HEADACHE
     Dosage: 8 MG

REACTIONS (1)
  - Drug ineffective [Unknown]
